FAERS Safety Report 7528447-5 (Version None)
Quarter: 2011Q2

REPORT INFORMATION
  Report Type: 
  Country: None (occurrence: None)
  Receive Date: 20110607
  Receipt Date: 20110525
  Transmission Date: 20111010
  Serious: Yes (Hospitalization, Other)
  Sender: FDA-Public Use
  Company Number: US-ELI_LILLY_AND_COMPANY-US201003000310

PATIENT
  Sex: Female

DRUGS (10)
  1. CALCIUM CARBONATE [Concomitant]
     Route: 065
  2. SERTRALINE HYDROCHLORIDE [Concomitant]
     Dosage: 50 MG, UNK
     Route: 065
  3. FORTEO [Suspect]
     Dosage: 20 UG, QD
     Route: 065
  4. FORTEO [Suspect]
     Indication: OSTEOPOROSIS
     Dosage: UNK, UNKNOWN
     Route: 065
  5. HYDROCODONE BITARTRATE AND ACETAMINOPHEN [Concomitant]
     Dosage: UNK MG, UNK
     Route: 065
  6. LEVOTHYROXINE SODIUM [Concomitant]
     Dosage: 100 MG, UNK
     Route: 065
  7. METOPROLOL                         /00376901/ [Concomitant]
     Dosage: 100 MG, UNK
     Route: 065
  8. LISINOPRIL [Concomitant]
     Dosage: 5 MG, UNK
     Route: 065
  9. MULTI-VITAMIN [Concomitant]
     Route: 065
  10. EVISTA [Suspect]
     Dosage: 60 MG, QD
     Route: 065

REACTIONS (5)
  - FALL [None]
  - HIP FRACTURE [None]
  - EXCORIATION [None]
  - PAIN [None]
  - HOSPITALISATION [None]
